FAERS Safety Report 16865664 (Version 1)
Quarter: 2019Q3

REPORT INFORMATION
  Report Type: Spontaneous
  Country: US (occurrence: US)
  Receive Date: 20190930
  Receipt Date: 20190930
  Transmission Date: 20191005
  Serious: No
  Sender: FDA-Public Use
  Company Number: US-HIKMA PHARMACEUTICALS USA INC.-US-H14001-18-08168

PATIENT
  Age: 14 Year
  Sex: Male

DRUGS (3)
  1. DARAPRIM [Suspect]
     Active Substance: PYRIMETHAMINE
     Indication: TOXOPLASMOSIS
     Route: 065
     Dates: start: 2018, end: 2018
  2. SULFADOXINE [Suspect]
     Active Substance: SULFADOXINE
     Indication: TOXOPLASMOSIS
     Route: 065
     Dates: start: 2018, end: 2018
  3. LEUCOVORIN. [Suspect]
     Active Substance: LEUCOVORIN
     Indication: TOXOPLASMOSIS
     Route: 065
     Dates: start: 2018, end: 2018

REACTIONS (4)
  - Anger [Recovered/Resolved]
  - Agitation [Recovered/Resolved]
  - Off label use [Recovered/Resolved]
  - Aggression [Recovered/Resolved]

NARRATIVE: CASE EVENT DATE: 2018
